FAERS Safety Report 5090661-9 (Version None)
Quarter: 2006Q3

REPORT INFORMATION
  Report Type: 
  Country: None (occurrence: None)
  Receive Date: 20060828
  Receipt Date: 20060817
  Transmission Date: 20061208
  Serious: Yes (Death, Hospitalization, Other)
  Sender: FDA-Public Use
  Company Number: CH-NOVOPROD-256198

PATIENT

DRUGS (1)
  1. NOVOSEVEN [Suspect]
     Indication: SMALL INTESTINAL HAEMORRHAGE
     Dosage: 7.2 MG, SINGLE
     Route: 042

REACTIONS (1)
  - MYOCARDIAL INFARCTION [None]
